FAERS Safety Report 8810191 (Version 5)
Quarter: 2014Q3

REPORT INFORMATION
  Report Type: Spontaneous
  Country: US (occurrence: US)
  Receive Date: 20120926
  Receipt Date: 20140903
  Transmission Date: 20150326
  Serious: Yes (Hospitalization, Other)
  Sender: FDA-Public Use
  Company Number: US-009507513-2009SP036859

PATIENT
  Sex: Female
  Weight: 104.33 kg

DRUGS (3)
  1. FAMOTIDINE. [Concomitant]
     Active Substance: FAMOTIDINE
     Indication: PRODUCT USED FOR UNKNOWN INDICATION
     Dosage: 40 MG, QD
  2. NUVARING [Suspect]
     Active Substance: ETHINYL ESTRADIOL\ETONOGESTREL
     Indication: CONTRACEPTION
     Dosage: UNK UNK, QM
     Route: 067
     Dates: start: 20050720, end: 200711
  3. IBUPROFEN. [Concomitant]
     Active Substance: IBUPROFEN
     Indication: PAIN
     Dosage: UNK UNK, PRN

REACTIONS (15)
  - Hypersensitivity [Unknown]
  - Pain in extremity [Unknown]
  - Dizziness [Unknown]
  - Thrombosis [Unknown]
  - Otitis media [Unknown]
  - Cellulitis [Unknown]
  - Hypertension [Unknown]
  - Paraesthesia [Recovering/Resolving]
  - Pulmonary embolism [Unknown]
  - Deep vein thrombosis [Unknown]
  - Blood pressure increased [Recovered/Resolved]
  - Chest pain [Unknown]
  - Otitis externa [Recovering/Resolving]
  - Dysuria [Unknown]
  - Palpitations [Unknown]

NARRATIVE: CASE EVENT DATE: 200705
